FAERS Safety Report 5221081-1 (Version None)
Quarter: 2007Q1

REPORT INFORMATION
  Report Type: 
  Country: None (occurrence: None)
  Receive Date: 20070126
  Receipt Date: 20070118
  Transmission Date: 20070707
  Serious: Yes (Other)
  Sender: FDA-Public Use
  Company Number: 200614772EU

PATIENT
  Age: 49 Year
  Sex: Male

DRUGS (1)
  1. NICOTINE [Suspect]
     Indication: DRUG USE FOR UNKNOWN INDICATION
     Dosage: 2MG SEE DOSAGE TEXT
     Route: 002
     Dates: start: 20060608, end: 20060609

REACTIONS (6)
  - ANAPHYLACTOID REACTION [None]
  - ANGINA PECTORIS [None]
  - HYPOTENSION [None]
  - MALAISE [None]
  - NAUSEA [None]
  - VERTIGO [None]
